FAERS Safety Report 11849039 (Version 1)
Quarter: 2015Q4

REPORT INFORMATION
  Report Type: Spontaneous
  Country: FR (occurrence: FR)
  Receive Date: 20151218
  Receipt Date: 20151218
  Transmission Date: 20160305
  Serious: Yes (Hospitalization)
  Sender: FDA-Public Use
  Company Number: FR-BAYER-2015-484326

PATIENT
  Age: 52 Year
  Sex: Male

DRUGS (9)
  1. ENALAPRIL [Concomitant]
     Active Substance: ENALAPRIL
  2. CIFLOX [Suspect]
     Active Substance: CIPROFLOXACIN
     Indication: OSTEITIS
     Dosage: 750 MG, BID
     Route: 048
     Dates: start: 20151006, end: 20151112
  3. FUNGIZONE [Suspect]
     Active Substance: AMPHOTERICIN B
     Indication: OSTEITIS
     Dosage: 1 DF, TID
     Route: 048
     Dates: start: 20150918, end: 20151112
  4. FORTUM [Suspect]
     Active Substance: CEFTAZIDIME
     Indication: OSTEITIS
     Dosage: 8 G, QD
     Route: 041
     Dates: start: 20151006, end: 20151112
  5. ZYVOXID [Suspect]
     Active Substance: LINEZOLID
     Indication: OSTEITIS
     Dosage: 600 MG, BID
     Route: 048
     Dates: start: 20150925, end: 20151112
  6. FLAGYL [Suspect]
     Active Substance: METRONIDAZOLE\METRONIDAZOLE HYDROCHLORIDE
     Dosage: 500 MG, TID
     Dates: start: 20150918, end: 20151112
  7. ATENOLOL. [Concomitant]
     Active Substance: ATENOLOL
  8. SPIRONOLACTONE. [Concomitant]
     Active Substance: SPIRONOLACTONE
  9. GLIBENCLAMIDE [Concomitant]
     Active Substance: GLYBURIDE

REACTIONS (2)
  - Thrombocytopenia [Unknown]
  - Normochromic normocytic anaemia [Unknown]

NARRATIVE: CASE EVENT DATE: 20151110
